FAERS Safety Report 21534571 (Version 2)
Quarter: 2022Q4

REPORT INFORMATION
  Report Type: Report from Study
  Country: FR (occurrence: FR)
  Receive Date: 20221101
  Receipt Date: 20221114
  Transmission Date: 20230113
  Serious: Yes (Hospitalization)
  Sender: FDA-Public Use
  Company Number: FR-NOVARTISPH-NVSC2022FR242633

PATIENT
  Age: 71 Year
  Sex: Female

DRUGS (12)
  1. FLUOROURACIL [Suspect]
     Active Substance: FLUOROURACIL
     Indication: Gastric cancer
     Dosage: 2600 MG/M2 EVERY 0.5 CYCLE(S) DAY 1 AND D15 OF CYCLE OF 4 WEEKS IN PREOPERATIVE PERIOD
     Route: 042
     Dates: start: 20220426, end: 20220607
  2. FLUOROURACIL [Suspect]
     Active Substance: FLUOROURACIL
     Dosage: 2600 MG/M2 EVERY 0.5 CYCLE(S) DAY 1 AND D15 OF CYCLE OF 4 WEEKS IN POSTOPERATIVE PERIOD
     Route: 042
     Dates: start: 20220830, end: 20221011
  3. OXALIPLATIN [Suspect]
     Active Substance: OXALIPLATIN
     Indication: Gastric cancer
     Dosage: 85 MG/M2 EVERY 0.5 CYCLE(S) DAY 1 AND D15 OF CYCLE OF 4 WEEKS IN PREOPERATIVE PERIOD (50 MILLIGRAM P
     Route: 042
     Dates: start: 20220426, end: 20220607
  4. OXALIPLATIN [Suspect]
     Active Substance: OXALIPLATIN
     Dosage: 85 MG/M2 EVERY 0.5 CYCLE(S) DAY 1 AND D15 OF CYCLE OF 4 WEEKS IN PREOPERATIVE PERIOD (50 MILLIGRAM P
     Route: 042
     Dates: start: 20220830, end: 20221011
  5. DOCETAXEL [Suspect]
     Active Substance: DOCETAXEL
     Indication: Gastric cancer
     Dosage: UNK
     Route: 042
  6. SPARTALIZUMAB [Suspect]
     Active Substance: SPARTALIZUMAB
     Indication: Gastric cancer
     Dosage: 400 MG PER EVERY DAY 1 OF CYCLE OF 4 WEEKS, 2 DOSES IN PREOPERATIVE PERIOD
     Route: 042
     Dates: start: 20220426, end: 20220524
  7. SPARTALIZUMAB [Suspect]
     Active Substance: SPARTALIZUMAB
     Dosage: 400 MG PER EVERY DAY 1 OF CYCLE OF 4 WEEKS, 2 DOSES IN POSTOPERATIVE PERIOD
     Route: 042
     Dates: start: 20220830, end: 20220927
  8. LOPERAMIDE [Concomitant]
     Active Substance: LOPERAMIDE
     Indication: Product used for unknown indication
     Dosage: UNK
     Route: 048
     Dates: start: 20220913
  9. AMLODIPINE [Concomitant]
     Active Substance: AMLODIPINE BESYLATE
     Indication: Hypertension
     Dosage: 20 MG EVERY 1 DAY
     Route: 048
  10. XYLOCAINE [Concomitant]
     Active Substance: LIDOCAINE HYDROCHLORIDE
     Indication: Product used for unknown indication
     Dosage: UNK
     Route: 048
     Dates: start: 20220927
  11. POTASSIUM CHLORIDE [Concomitant]
     Active Substance: POTASSIUM CHLORIDE
     Indication: Product used for unknown indication
     Dosage: UNK
     Route: 048
     Dates: start: 20220927
  12. SMECTA [Concomitant]
     Active Substance: MONTMORILLONITE
     Indication: Product used for unknown indication
     Dosage: UNK
     Route: 048
     Dates: start: 20220927

REACTIONS (1)
  - Febrile bone marrow aplasia [Recovered/Resolved]

NARRATIVE: CASE EVENT DATE: 20221017
